FAERS Safety Report 7222131-3 (Version None)
Quarter: 2011Q1

REPORT INFORMATION
  Report Type: 
  Country: None (occurrence: None)
  Receive Date: 20110103
  Receipt Date: 20101220
  Transmission Date: 20110831
  Serious: Yes (Hospitalization)
  Sender: FDA-Public Use
  Company Number: DSJ-2010-22478

PATIENT
  Age: 69 Year
  Sex: Female

DRUGS (2)
  1. CHEMOTHERAPY (CHEMOTHERAPEUTICS NOS) [Concomitant]
  2. BENICAR HCT [Suspect]
     Indication: HYPERTENSION
     Dosage: 20/12.5 MG (1 IN 1 D), PER ORAL
     Route: 048
     Dates: start: 20090101

REACTIONS (3)
  - THROMBOCYTOPENIA [None]
  - CONDITION AGGRAVATED [None]
  - ANAEMIA [None]
